FAERS Safety Report 7446869-8 (Version None)
Quarter: 2011Q2

REPORT INFORMATION
  Report Type: 
  Country: None (occurrence: None)
  Receive Date: 20110429
  Receipt Date: 20110426
  Transmission Date: 20111010
  Serious: Yes (Death, Hospitalization, Other)
  Sender: FDA-Public Use
  Company Number: FR-BRISTOL-MYERS SQUIBB COMPANY-15050065

PATIENT
  Age: 71 Year
  Sex: Female
  Weight: 63 kg

DRUGS (7)
  1. EFFEXOR [Concomitant]
     Indication: DEPRESSION
     Route: 048
     Dates: start: 20090101
  2. VITAMIN D [Concomitant]
     Indication: OSTEOPOROSIS
     Dosage: 1DF-1TABS
     Route: 048
     Dates: start: 20000101
  3. PLAVIX [Concomitant]
     Indication: CEREBROVASCULAR ACCIDENT
     Route: 048
     Dates: start: 20000101
  4. ORENCIA [Suspect]
     Indication: RHEUMATOID ARTHRITIS
     Dosage: INTERRUPTED ON 17MAR2010 + RESTARTED ON 11MAY2010
     Route: 042
     Dates: start: 20090619, end: 20101216
  5. CORTANCYL [Suspect]
     Indication: RHEUMATOID ARTHRITIS
     Route: 048
     Dates: start: 20020101
  6. FLUDEX [Concomitant]
     Indication: HYPERTENSION
     Dosage: 1DF-1TABS
     Route: 048
     Dates: start: 20070101
  7. CALCIDOSE [Concomitant]
     Indication: OSTEOPOROSIS
     Dosage: 1DF-1TABS
     Route: 048
     Dates: start: 20000101

REACTIONS (4)
  - HERPES ZOSTER [None]
  - PNEUMONIA ASPIRATION [None]
  - METASTASES TO SALIVARY GLAND [None]
  - VIITH NERVE PARALYSIS [None]
